FAERS Safety Report 23866094 (Version 2)
Quarter: 2025Q3

REPORT INFORMATION
  Report Type: Spontaneous
  Country: EU (occurrence: EU)
  Receive Date: 20240517
  Receipt Date: 20250710
  Transmission Date: 20251021
  Serious: Yes (Hospitalization)
  Sender: RANBAXY
  Company Number: EU-SUN PHARMACEUTICAL INDUSTRIES LTD-2024RR-446782

PATIENT
  Age: 24 Year
  Sex: Male
  Weight: 62 kg

DRUGS (5)
  1. MORPHINE [Suspect]
     Active Substance: MORPHINE
     Indication: Procedural pain
     Route: 058
     Dates: start: 20240206, end: 20240206
  2. MORPHINE [Suspect]
     Active Substance: MORPHINE
     Route: 040
     Dates: start: 20240206, end: 20240206
  3. OXYCODONE [Suspect]
     Active Substance: OXYCODONE
     Indication: Procedural pain
     Dosage: 10 MILLIGRAM, QOD
     Route: 048
     Dates: start: 20240206, end: 20240206
  4. OXYCODONE HYDROCHLORIDE [Suspect]
     Active Substance: OXYCODONE HYDROCHLORIDE
     Indication: Procedural pain
     Dosage: 5 MILLIGRAM, QID
     Route: 048
     Dates: start: 20240205, end: 20240206
  5. NEFOPAM [Concomitant]
     Active Substance: NEFOPAM
     Indication: Procedural pain
     Dosage: 1 DOSAGE FORM, QID
     Route: 040
     Dates: start: 20240205, end: 20240206

REACTIONS (3)
  - Loss of consciousness [Recovering/Resolving]
  - Urinary retention [Recovering/Resolving]
  - Accidental overdose [Recovered/Resolved]

NARRATIVE: CASE EVENT DATE: 20240206
